FAERS Safety Report 17750346 (Version 2)
Quarter: 2020Q3

REPORT INFORMATION
  Report Type: Spontaneous
  Country: US (occurrence: US)
  Receive Date: 20200506
  Receipt Date: 20200817
  Transmission Date: 20201102
  Serious: No
  Sender: FDA-Public Use
  Company Number: US-PFIZER INC-2020180855

PATIENT
  Age: 80 Year
  Sex: Female
  Weight: 86.18 kg

DRUGS (1)
  1. CELECOXIB. [Suspect]
     Active Substance: CELECOXIB
     Indication: ARTHRITIS
     Dosage: 200 MG, ONCE DAILY
     Route: 048

REACTIONS (1)
  - Drug ineffective [Unknown]
